FAERS Safety Report 19482837 (Version 3)
Quarter: 2021Q3

REPORT INFORMATION
  Report Type: Report from Study
  Country: US (occurrence: US)
  Receive Date: 20210701
  Receipt Date: 20210713
  Transmission Date: 20211014
  Serious: Yes (Other)
  Sender: FDA-Public Use
  Company Number: US-ORGANON-O2106USA002584

PATIENT
  Sex: Female

DRUGS (3)
  1. IMPLANON [Suspect]
     Active Substance: ETONOGESTREL
     Dosage: 1 IMPLANT (REPORTED AS 2ND IMPLANT)
     Route: 059
  2. IMPLANON [Suspect]
     Active Substance: ETONOGESTREL
     Indication: CONTRACEPTION
     Dosage: 1 DOSAGE FORM (68 MG), ONCE (DAILY); REPORTED AS 3RD IMPLANT
     Route: 059
     Dates: start: 202104
  3. IMPLANON [Suspect]
     Active Substance: ETONOGESTREL
     Dosage: 1 IMPLANT (REPORTED AS 1ST IMPLANT)
     Route: 059

REACTIONS (2)
  - Medical device site discomfort [Unknown]
  - Device dislocation [Not Recovered/Not Resolved]

NARRATIVE: CASE EVENT DATE: 2021
